FAERS Safety Report 9607526 (Version 1)
Quarter: 2013Q4

REPORT INFORMATION
  Report Type: Spontaneous
  Country: US (occurrence: None)
  Receive Date: 20131007
  Receipt Date: 20131007
  Transmission Date: 20140711
  Serious: Yes (Other)
  Sender: FDA-Public Use
  Company Number: None

PATIENT
  Age: 29 Year
  Sex: Female
  Weight: 54.43 kg

DRUGS (1)
  1. DULCOLAX [Suspect]
     Indication: CONSTIPATION
     Dosage: TAKEN BY MOUTH
     Dates: start: 20131005, end: 20131005

REACTIONS (5)
  - Abdominal pain [None]
  - Vomiting [None]
  - Diarrhoea [None]
  - Pain [None]
  - Immobile [None]
